FAERS Safety Report 9823234 (Version 2)
Quarter: 2014Q1

REPORT INFORMATION
  Report Type: Report from Study
  Country: AU (occurrence: AU)
  Receive Date: 20140116
  Receipt Date: 20140128
  Transmission Date: 20141002
  Serious: Yes (Hospitalization)
  Sender: FDA-Public Use
  Company Number: PHHO2014AU000871

PATIENT
  Age: 43 Year
  Sex: Female
  Weight: 103.5 kg

DRUGS (3)
  1. IRINOTECAN [Suspect]
     Indication: COLORECTAL CANCER METASTATIC
     Dosage: 332 MG, BIW
     Route: 042
     Dates: start: 20131009
  2. AFINITOR [Suspect]
     Indication: COLORECTAL CANCER METASTATIC
     Dosage: 5 MG, FOR ALTERNATE DAYS
     Route: 048
     Dates: start: 20131009
  3. PANITUMUMAB [Suspect]
     Indication: COLORECTAL CANCER METASTATIC
     Dosage: 616 MG, BIW
     Route: 042
     Dates: start: 20131009

REACTIONS (1)
  - Migraine [Not Recovered/Not Resolved]
